FAERS Safety Report 13146512 (Version 1)
Quarter: 2017Q1

REPORT INFORMATION
  Report Type: Spontaneous
  Country: PL (occurrence: PL)
  Receive Date: 20170125
  Receipt Date: 20170125
  Transmission Date: 20170428
  Serious: Yes (Other)
  Sender: FDA-Public Use
  Company Number: PL-ACCORD-047781

PATIENT
  Age: 34 Year
  Sex: Female

DRUGS (11)
  1. VINORELBINE [Concomitant]
     Active Substance: VINORELBINE\VINORELBINE TARTRATE
     Indication: METASTATIC NEOPLASM
     Dosage: FIRST AND EIGHTH DAY
     Route: 042
  2. DOCETAXEL. [Suspect]
     Active Substance: DOCETAXEL
     Indication: METASTATIC NEOPLASM
     Dosage: TAC, AT REGIMEN
     Route: 042
     Dates: start: 201411
  3. CRIZOTINIB [Concomitant]
     Active Substance: CRIZOTINIB
  4. DOXORUBICIN [Suspect]
     Active Substance: DOXORUBICIN
     Indication: METASTATIC NEOPLASM
     Dosage: EVERY THREE WEEKS ON DAY ONE
     Route: 042
     Dates: start: 201411
  5. CYCLOPHOSPHAMIDE/CYCLOPHOSPHAMIDE MONOHYDRATE [Concomitant]
     Active Substance: CYCLOPHOSPHAMIDE
     Indication: METASTATIC NEOPLASM
     Dosage: ON DAY ONE
  6. ZOLEDRONIC ACID [Concomitant]
     Active Substance: ZOLEDRONIC ACID
  7. CISPLATIN. [Suspect]
     Active Substance: CISPLATIN
     Indication: METASTATIC NEOPLASM
     Dosage: ON DAY ONE
     Route: 042
     Dates: start: 201412
  8. FLUOROURACIL. [Suspect]
     Active Substance: FLUOROURACIL
     Indication: METASTATIC NEOPLASM
     Dosage: FIRST-FIFTH DAY, CYCLES EVERY 21 DAYS
     Route: 042
  9. DENOSUMAB [Concomitant]
     Active Substance: DENOSUMAB
  10. TAMOXIFEN [Concomitant]
     Active Substance: TAMOXIFEN
     Dates: start: 201505
  11. GEMCITABINE/GEMCITABINE HYDROCHLORIDE [Suspect]
     Active Substance: GEMCITABINE\GEMCITABINE HYDROCHLORIDE
     Indication: METASTATIC NEOPLASM
     Dosage: ON THE FIRST AND EIGHTH DAY
     Route: 042
     Dates: start: 201412

REACTIONS (4)
  - Dyspnoea [Recovered/Resolved]
  - Nausea [Unknown]
  - Asthenia [Unknown]
  - Neutropenia [Unknown]

NARRATIVE: CASE EVENT DATE: 201509
